FAERS Safety Report 20580982 (Version 1)
Quarter: 2022Q1

REPORT INFORMATION
  Report Type: Spontaneous
  Country: KR (occurrence: KR)
  Receive Date: 20220311
  Receipt Date: 20220311
  Transmission Date: 20220423
  Serious: Yes (Other)
  Sender: FDA-Public Use
  Company Number: KR-LUPIN PHARMACEUTICALS INC.-2022-03353

PATIENT
  Age: 69 Year
  Sex: Female
  Weight: 61 kg

DRUGS (4)
  1. METHYLPREDNISOLONE [Suspect]
     Active Substance: METHYLPREDNISOLONE
     Indication: Anaphylaxis prophylaxis
     Dosage: 40 MG, AT 1, 7 AND 13 HOURS PRIOR TO TRANSFUSION
     Route: 042
  2. AZACITIDINE [Suspect]
     Active Substance: AZACITIDINE
     Indication: Pancytopenia
     Dosage: 75 MILLIGRAM/SQ. METER
     Route: 065
     Dates: start: 2016
  3. CHLORPHENIRAMINE [Suspect]
     Active Substance: CHLORPHENIRAMINE
     Indication: Anaphylaxis prophylaxis
     Dosage: 4 MG, 1 HOUR PRIOR TO TRANSFUSION
     Route: 042
  4. OMALIZUMAB [Concomitant]
     Active Substance: OMALIZUMAB
     Indication: Anaphylaxis prophylaxis
     Dosage: 150 MG,1WEEK BEFORE THE PLATELET TRANSFUSION
     Route: 065

REACTIONS (3)
  - Drug ineffective [Unknown]
  - Drug ineffective for unapproved indication [Unknown]
  - Off label use [Unknown]
